FAERS Safety Report 9157365 (Version 2)
Quarter: 2013Q2

REPORT INFORMATION
  Report Type: Spontaneous
  Country: JP (occurrence: JP)
  Receive Date: 20130312
  Receipt Date: 20130429
  Transmission Date: 20140414
  Serious: Yes (Other)
  Sender: FDA-Public Use
  Company Number: JP-SANOFI-AVENTIS-2013SA022794

PATIENT
  Age: 31 Year
  Sex: Female

DRUGS (2)
  1. ALLEGRA [Suspect]
     Indication: URTICARIA
     Route: 048
     Dates: start: 20130207, end: 20130221
  2. BACTERIA NOS [Concomitant]
     Indication: URTICARIA
     Route: 048
     Dates: start: 20130207, end: 20130221

REACTIONS (3)
  - Cystitis haemorrhagic [Recovered/Resolved]
  - Blood urine present [Recovered/Resolved]
  - Pollakiuria [Recovered/Resolved]
